FAERS Safety Report 17669986 (Version 3)
Quarter: 2023Q4

REPORT INFORMATION
  Report Type: Spontaneous
  Country: US (occurrence: US)
  Receive Date: 20200415
  Receipt Date: 20231128
  Transmission Date: 20240109
  Serious: Yes (Other)
  Sender: FDA-Public Use
  Company Number: US-PFIZER INC-2020153392

PATIENT
  Age: 51 Year
  Sex: Female
  Weight: 80.091 kg

DRUGS (8)
  1. IBRANCE [Suspect]
     Active Substance: PALBOCICLIB
     Indication: Breast cancer female
     Dosage: 100 MG, 1 TAB EVERY DAY FOR 21 DAYS WITH 7 DAYS OFF
     Dates: start: 20200306, end: 20230308
  2. IBRANCE [Suspect]
     Active Substance: PALBOCICLIB
     Dosage: 100 MG, CYCLIC [TAKE 1 TAB PO QD X 21 DAYS/ 7 DAY OFF]
     Dates: end: 20230405
  3. IBRANCE [Suspect]
     Active Substance: PALBOCICLIB
     Dosage: 100 MG, CYCLIC [TAKE 1 TAB PO QD X 21 DAYS/ 7 DAY OFF]
     Dates: start: 20230511, end: 20230810
  4. IBRANCE [Suspect]
     Active Substance: PALBOCICLIB
     Dosage: 100 MG, CYCLIC [TAKE 1 TAB PO QD X 21 DAYS/ 7 DAY OFF]
     Dates: start: 20231116
  5. FEMARA [Concomitant]
     Active Substance: LETROZOLE
     Dosage: UNK
     Dates: start: 20200306
  6. LETROZOLE [Concomitant]
     Active Substance: LETROZOLE
     Dosage: UNK
     Dates: start: 20231116
  7. ZOMETA [Concomitant]
     Active Substance: ZOLEDRONIC ACID
     Dosage: UNK
  8. ZOMETA [Concomitant]
     Active Substance: ZOLEDRONIC ACID
     Dosage: UNK
     Dates: start: 20210520

REACTIONS (9)
  - Gastrointestinal oedema [Unknown]
  - Colitis [Unknown]
  - Pleural effusion [Unknown]
  - Pericardial effusion [Unknown]
  - Condition aggravated [Unknown]
  - Nephrolithiasis [Unknown]
  - Neoplasm progression [Unknown]
  - Hepatic steatosis [Unknown]
  - Diverticulum intestinal [Unknown]
